FAERS Safety Report 5397553-6 (Version None)
Quarter: 2007Q3

REPORT INFORMATION
  Report Type: 
  Country: None (occurrence: None)
  Receive Date: 20070724
  Receipt Date: 20070724
  Transmission Date: 20080115
  Serious: Yes (Hospitalization)
  Sender: FDA-Public Use
  Company Number: None

PATIENT
  Age: 73 Year
  Sex: Female
  Weight: 49.7 kg

DRUGS (1)
  1. AVINZA [Suspect]
     Indication: PAIN
     Dosage: 1 TAB TWICE DAILY PRN PO
     Route: 048

REACTIONS (3)
  - ACCIDENTAL OVERDOSE [None]
  - LETHARGY [None]
  - ORAL INTAKE REDUCED [None]
